FAERS Safety Report 9656096 (Version 2)
Quarter: 2015Q2

REPORT INFORMATION
  Report Type: Report from Study
  Country: ID (occurrence: ID)
  Receive Date: 20131030
  Receipt Date: 20150414
  Transmission Date: 20150821
  Serious: Yes (Death, Other)
  Sender: FDA-Public Use
  Company Number: PHHY2013ID122161

PATIENT
  Age: 71 Year
  Sex: Male

DRUGS (1)
  1. GLIVEC [Suspect]
     Active Substance: IMATINIB MESYLATE
     Indication: CHRONIC MYELOID LEUKAEMIA
     Dosage: 100 MG, QID (4 X 1)
     Route: 048

REACTIONS (6)
  - Lung neoplasm malignant [Unknown]
  - Leukaemia [Unknown]
  - Abdominal pain [Unknown]
  - Second primary malignancy [Unknown]
  - Myalgia [Unknown]
  - Death [Fatal]

NARRATIVE: CASE EVENT DATE: 20130709
